FAERS Safety Report 8868200 (Version 1)
Quarter: 2012Q4

REPORT INFORMATION
  Report Type: 
  Country: US (occurrence: US)
  Receive Date: 20121025
  Receipt Date: 20121025
  Transmission Date: 20130627
  Serious: Yes (Other)
  Sender: FDA-Public Use
  Company Number: US-AMGEN-USASP2012019194

PATIENT
  Sex: Female
  Weight: 77.1 kg

DRUGS (4)
  1. ENBREL [Suspect]
     Indication: PRODUCT USED FOR UNKNOWN INDICATION
     Dosage: 50 mg, qwk
     Route: 058
  2. ENBREL [Suspect]
     Dosage: 50 mg, qwk
     Route: 058
     Dates: start: 20120327
  3. SYNTHROID [Concomitant]
     Dosage: 100 mug, UNK
  4. METHOTREXATE [Concomitant]
     Dosage: 2.5 mg, UNK

REACTIONS (1)
  - Malignant melanoma [Unknown]
